FAERS Safety Report 14119109 (Version 1)
Quarter: 2017Q4

REPORT INFORMATION
  Report Type: Report from Study
  Country: None (occurrence: US)
  Receive Date: 20171024
  Receipt Date: 20171024
  Transmission Date: 20180321
  Serious: Yes (Hospitalization)
  Sender: FDA-Public Use
  Company Number: US-ABBVIE-17K-163-2070557-00

PATIENT
  Age: 65 Year
  Sex: Female
  Weight: 63.56 kg

DRUGS (1)
  1. HUMIRA [Suspect]
     Active Substance: ADALIMUMAB
     Indication: RHEUMATOID ARTHRITIS
     Route: 058
     Dates: start: 2007, end: 201511

REACTIONS (11)
  - Wrist fracture [Recovered/Resolved]
  - Immune system disorder [Unknown]
  - Intervertebral disc degeneration [Not Recovered/Not Resolved]
  - Nocardiosis [Recovering/Resolving]
  - Anxiety [Unknown]
  - Neck pain [Not Recovered/Not Resolved]
  - Osteoporosis [Not Recovered/Not Resolved]
  - Fall [Recovered/Resolved]
  - Chest X-ray abnormal [Recovering/Resolving]
  - Pneumonia [Recovering/Resolving]
  - Cervical spinal stenosis [Not Recovered/Not Resolved]

NARRATIVE: CASE EVENT DATE: 201511
